FAERS Safety Report 18453185 (Version 1)
Quarter: 2020Q4

REPORT INFORMATION
  Report Type: Spontaneous
  Country: BR (occurrence: BR)
  Receive Date: 20201102
  Receipt Date: 20201102
  Transmission Date: 20210114
  Serious: Yes (Other)
  Sender: FDA-Public Use
  Company Number: NVSC2020BR266759

PATIENT
  Sex: Female
  Weight: 56 kg

DRUGS (5)
  1. ESTRADOT [Suspect]
     Active Substance: ESTRADIOL
     Indication: ASSISTED FERTILISATION
     Dosage: 300 UG
     Route: 065
     Dates: start: 2019
  2. ESTRADOT [Suspect]
     Active Substance: ESTRADIOL
     Indication: IN VITRO FERTILISATION
     Dosage: UNK UNK, QD (ONE TO THREE PATCHES)
     Route: 065
  3. OMEGA 3 [Concomitant]
     Active Substance: OMEGA-3 FATTY ACIDS
     Indication: ASSISTED FERTILISATION
     Dosage: 1 DF, QD
     Route: 048
     Dates: start: 201903
  4. ESTRADOT [Suspect]
     Active Substance: ESTRADIOL
     Dosage: 1 ADHESIVE FOR 4 DAYS, 2 ADHESIVES FOR 4  DAYS, 3 STICKERS FOR 15 DAYS, 2 STICKERS PATIENT BELIEVE I
     Route: 062
     Dates: start: 20191109, end: 20191220
  5. ASPIRIN. [Concomitant]
     Active Substance: ASPIRIN
     Indication: ASSISTED FERTILISATION
     Dosage: 1 DF, QD
     Route: 048
     Dates: start: 20191101, end: 20191220

REACTIONS (5)
  - Uterine leiomyoma [Not Recovered/Not Resolved]
  - Inappropriate schedule of product administration [Unknown]
  - Endometriosis [Unknown]
  - Product use in unapproved indication [Unknown]
  - Dysmenorrhoea [Not Recovered/Not Resolved]
